FAERS Safety Report 16928272 (Version 2)
Quarter: 2019Q4

REPORT INFORMATION
  Report Type: Report from Study
  Country: None (occurrence: US)
  Receive Date: 20191017
  Receipt Date: 20191029
  Transmission Date: 20200122
  Serious: Yes (Hospitalization, Other)
  Sender: FDA-Public Use
  Company Number: US-ABBVIE-19K-163-2965125-00

PATIENT
  Age: 81 Year
  Sex: Female

DRUGS (1)
  1. VENCLEXTA [Suspect]
     Active Substance: VENETOCLAX
     Indication: LYMPHOCYTIC LEUKAEMIA
     Route: 048
     Dates: start: 20190930

REACTIONS (13)
  - Neutrophil count decreased [Recovered/Resolved]
  - Stomatitis [Unknown]
  - Pain [Unknown]
  - Fatigue [Unknown]
  - Neutrophil count decreased [Unknown]
  - Red blood cell count abnormal [Recovering/Resolving]
  - White blood cell count abnormal [Unknown]
  - Gingival bleeding [Unknown]
  - White blood cell count decreased [Recovered/Resolved]
  - Platelet count abnormal [Recovered/Resolved]
  - Pruritus [Unknown]
  - Platelet count abnormal [Unknown]
  - Haemoglobin abnormal [Unknown]

NARRATIVE: CASE EVENT DATE: 201910
